FAERS Safety Report 5430080-6 (Version None)
Quarter: 2007Q3

REPORT INFORMATION
  Report Type: 
  Country: None (occurrence: None)
  Receive Date: 20070829
  Receipt Date: 20070827
  Transmission Date: 20080115
  Serious: Yes (Hospitalization)
  Sender: FDA-Public Use
  Company Number: DE-ABBOTT-05P-062-0312989-00

PATIENT
  Age: 83 Year
  Sex: Male

DRUGS (8)
  1. COLCHICINE [Suspect]
     Indication: GOUT
  2. VERAPAMIL EXTENDED-RELEASE [Interacting]
     Indication: TACHYARRHYTHMIA
  3. VERAPAMIL EXTENDED-RELEASE [Interacting]
     Indication: SICK SINUS SYNDROME
  4. FUROSEMIDE [Concomitant]
     Indication: DRUG USE FOR UNKNOWN INDICATION
     Dosage: NOT REPORTED
  5. ASPIRIN [Concomitant]
     Indication: DRUG USE FOR UNKNOWN INDICATION
     Dosage: NOT REPORTED
  6. AMBROXOL [Concomitant]
     Indication: DRUG USE FOR UNKNOWN INDICATION
     Dosage: NOT REPORTED
  7. THEOPHYLLINE [Concomitant]
     Indication: DRUG USE FOR UNKNOWN INDICATION
     Dosage: NOT REPORTED
  8. DICLOFENAC SODIUM [Concomitant]
     Indication: PAIN
     Dosage: NOT REPORTED

REACTIONS (4)
  - DRUG INTERACTION [None]
  - GUILLAIN-BARRE SYNDROME [None]
  - MUSCULAR WEAKNESS [None]
  - NEUROMYOPATHY [None]
